FAERS Safety Report 13746734 (Version 4)
Quarter: 2017Q4

REPORT INFORMATION
  Report Type: Spontaneous
  Country: JP (occurrence: JP)
  Receive Date: 20170712
  Receipt Date: 20171011
  Transmission Date: 20180320
  Serious: Yes (Death, Other)
  Sender: FDA-Public Use
  Company Number: JP-PFIZER INC-2017296154

PATIENT
  Age: 78 Year
  Sex: Female

DRUGS (4)
  1. INTRALIPOS [Concomitant]
     Active Substance: SOYBEAN OIL
     Dosage: UNK
  2. ZYVOX [Suspect]
     Active Substance: LINEZOLID
     Indication: STAPHYLOCOCCAL SEPSIS
     Dosage: 600 MG, 2X/DAY
     Route: 041
     Dates: start: 20170613, end: 20170622
  3. ZOSYN [Concomitant]
     Active Substance: PIPERACILLIN SODIUM\TAZOBACTAM SODIUM
     Dosage: 2.25 G, 3X/DAY
     Dates: start: 20170616, end: 20170621
  4. HICALIQ [Concomitant]
     Active Substance: CALCIUM GLUCONATE\DEXTROSE\MAGNESIUM SULFATE\POTASSIUM ACETATE\POTASSIUM PHOSPHATE, DIBASIC\ZINC SULFATE
     Dosage: UNK

REACTIONS (5)
  - Acidosis [Unknown]
  - Electrolyte imbalance [Unknown]
  - Diarrhoea [Fatal]
  - Drug ineffective [Fatal]
  - Psychiatric symptom [Unknown]

NARRATIVE: CASE EVENT DATE: 201706
